FAERS Safety Report 22108570 (Version 2)
Quarter: 2023Q1

REPORT INFORMATION
  Report Type: Spontaneous
  Country: UY (occurrence: UY)
  Receive Date: 20230317
  Receipt Date: 20230324
  Transmission Date: 20230418
  Serious: Yes (Other)
  Sender: FDA-Public Use
  Company Number: UY-002147023-NVSC2023UY059751

PATIENT
  Sex: Female

DRUGS (3)
  1. TEGRETOL XR [Suspect]
     Active Substance: CARBAMAZEPINE
     Indication: Epilepsy
     Dosage: 2000 MG, QD
     Route: 048
     Dates: start: 1986
  2. TEGRETOL XR [Suspect]
     Active Substance: CARBAMAZEPINE
     Dosage: QD
     Route: 048
  3. TEGRETOL XR [Suspect]
     Active Substance: CARBAMAZEPINE
     Dosage: 400 MG, QD (ONCE PER DAY AT NIGHT)
     Route: 048

REACTIONS (10)
  - Visual impairment [Unknown]
  - Petit mal epilepsy [Unknown]
  - Hallucination, visual [Unknown]
  - Seizure [Unknown]
  - Epilepsy [Unknown]
  - Sleep disorder [Unknown]
  - Disorientation [Unknown]
  - Stress [Unknown]
  - Memory impairment [Unknown]
  - Product substitution issue [Unknown]
